FAERS Safety Report 24205147 (Version 2)
Quarter: 2024Q3

REPORT INFORMATION
  Report Type: Spontaneous
  Country: TW (occurrence: TW)
  Receive Date: 20240813
  Receipt Date: 20240920
  Transmission Date: 20241017
  Serious: Yes (Death, Hospitalization, Other)
  Sender: BAYER
  Company Number: TW-BAYER-2024A102063

PATIENT
  Age: 64 Year
  Sex: Male

DRUGS (2)
  1. XOFIGO [Suspect]
     Active Substance: RADIUM RA-223 DICHLORIDE
     Indication: Hormone-refractory prostate cancer
     Dosage: 1 DF, ONCE
     Dates: start: 20240613, end: 20240613
  2. XOFIGO [Suspect]
     Active Substance: RADIUM RA-223 DICHLORIDE
     Indication: Metastases to bone

REACTIONS (4)
  - Hepatic function abnormal [Fatal]
  - Acute kidney injury [Fatal]
  - Anaemia [None]
  - Prostate cancer [None]

NARRATIVE: CASE EVENT DATE: 20240101
